FAERS Safety Report 5155219-1 (Version None)
Quarter: 2006Q4

REPORT INFORMATION
  Report Type: 
  Country: None (occurrence: None)
  Receive Date: 20061121
  Receipt Date: 20061120
  Transmission Date: 20070319
  Serious: Yes (Other)
  Sender: FDA-Public Use
  Company Number: US-GLAXOSMITHKLINE-A0628060A

PATIENT
  Age: 79 Year
  Sex: Female

DRUGS (10)
  1. CITRUCEL CHOCOLATE FIBERSHAKE [Suspect]
     Indication: GASTROINTESTINAL DISORDER
     Route: 048
     Dates: start: 20061101
  2. PREMARIN [Concomitant]
  3. QVAR 40 [Concomitant]
  4. ASPIRIN [Concomitant]
     Dosage: 81MG PER DAY
  5. THYROID TAB [Concomitant]
     Dosage: 60MG PER DAY
  6. MULTI-VITAMIN [Concomitant]
  7. VIACTIV [Concomitant]
  8. RYTHMOL [Concomitant]
     Dosage: 225MG TWICE PER DAY
  9. DIGOXIN [Concomitant]
     Dosage: .25MG PER DAY
  10. ALLOPURINOL [Concomitant]

REACTIONS (7)
  - ASTHENIA [None]
  - ATRIAL FIBRILLATION [None]
  - DYSPNOEA [None]
  - ERUCTATION [None]
  - HEART RATE INCREASED [None]
  - MALAISE [None]
  - MUSCULAR WEAKNESS [None]
